FAERS Safety Report 17279640 (Version 1)
Quarter: 2020Q1

REPORT INFORMATION
  Report Type: Report from Study
  Country: US (occurrence: US)
  Receive Date: 20200116
  Receipt Date: 20200116
  Transmission Date: 20200409
  Serious: Yes (Hospitalization, Other)
  Sender: FDA-Public Use
  Company Number: US-GILEAD-2020-0446985

PATIENT
  Age: 63 Year
  Sex: Female

DRUGS (10)
  1. IDELALISIB [Suspect]
     Active Substance: IDELALISIB
     Indication: B-CELL LYMPHOMA
     Dosage: 100 MG, BID
     Route: 048
  2. ARMOUR THYROID [Concomitant]
     Active Substance: THYROID, PORCINE
  3. VITAMIN D [VITAMIN D NOS] [Concomitant]
     Active Substance: VITAMIN D NOS
  4. CETIRIZINE [Concomitant]
     Active Substance: CETIRIZINE HYDROCHLORIDE
  5. SPIRONOLACTONE. [Concomitant]
     Active Substance: SPIRONOLACTONE
  6. MORPHABOND ER [Concomitant]
     Active Substance: MORPHINE SULFATE
  7. HYDROMORPHONE [Concomitant]
     Active Substance: HYDROMORPHONE
  8. GABAPENTIN. [Concomitant]
     Active Substance: GABAPENTIN
  9. DEXAMETHASONE. [Concomitant]
     Active Substance: DEXAMETHASONE
  10. PROMETHAZINE [Concomitant]
     Active Substance: PROMETHAZINE HYDROCHLORIDE

REACTIONS (2)
  - Vomiting [Unknown]
  - Salmonellosis [Unknown]

NARRATIVE: CASE EVENT DATE: 20191230
